FAERS Safety Report 12639623 (Version 4)
Quarter: 2016Q4

REPORT INFORMATION
  Report Type: Report from Study
  Country: KR (occurrence: KR)
  Receive Date: 20160810
  Receipt Date: 20161215
  Transmission Date: 20170207
  Serious: Yes (Other)
  Sender: FDA-Public Use
  Company Number: KR-BRISTOL-MYERS SQUIBB COMPANY-BMS-2016-065393

PATIENT
  Age: 47 Year
  Sex: Male

DRUGS (5)
  1. ASUNAPREVIR [Suspect]
     Active Substance: ASUNAPREVIR
     Indication: CHRONIC HEPATITIS C
     Dosage: 100 MG, BID
     Route: 065
     Dates: start: 20160125, end: 20160711
  2. KLARICID                           /00984601/ [Concomitant]
     Active Substance: CLARITHROMYCIN
     Indication: HELICOBACTER INFECTION
     Dosage: 2 TAB, UNK
     Route: 048
     Dates: start: 20160722, end: 20160728
  3. RABIET [Concomitant]
     Indication: HELICOBACTER INFECTION
     Dosage: 2 TAB, QD
     Route: 048
     Dates: start: 20160722, end: 20160728
  4. DACLATASVIR DIHYDROCHLORIDE [Suspect]
     Active Substance: DACLATASVIR DIHYDROCHLORIDE
     Indication: CHRONIC HEPATITIS C
     Dosage: 60 MG, QD
     Route: 065
     Dates: start: 20160125, end: 20160711
  5. AMOXAPEN                           /00249602/ [Concomitant]
     Indication: HELICOBACTER INFECTION
     Dosage: UNK
     Route: 048
     Dates: start: 20160722, end: 20160728

REACTIONS (5)
  - Blood cholesterol increased [Recovering/Resolving]
  - Helicobacter infection [Recovered/Resolved]
  - Gastritis [Not Recovered/Not Resolved]
  - Gastrooesophageal reflux disease [Not Recovered/Not Resolved]
  - Duodenal ulcer [Not Recovered/Not Resolved]

NARRATIVE: CASE EVENT DATE: 20160627
